FAERS Safety Report 9824695 (Version 1)
Quarter: 2014Q1

REPORT INFORMATION
  Report Type: Spontaneous
  Country: US (occurrence: US)
  Receive Date: 20140117
  Receipt Date: 20140117
  Transmission Date: 20141002
  Serious: Yes (Hospitalization)
  Sender: FDA-Public Use
  Company Number: US-ROCHE-1334500

PATIENT
  Age: 58 Year
  Sex: Female

DRUGS (13)
  1. XELODA [Suspect]
     Indication: BREAST CANCER
     Dosage: 6 TABS DAILY ALT 7 TABS,DAILY FOR 7 DAYS ON, 7 OFF
     Route: 048
     Dates: start: 20130415
  2. ALBUTEROL [Concomitant]
  3. ADVIL [Concomitant]
  4. ALENDRONATE [Concomitant]
  5. BACTROBAN [Concomitant]
  6. BUDESONIDE [Concomitant]
  7. CALCITRIOL [Concomitant]
     Route: 065
  8. ESTER-C (UNITED STATES) [Concomitant]
  9. LISINOPRIL [Concomitant]
  10. SPIRONOLACTONE [Concomitant]
  11. TYLENOL [Concomitant]
  12. UBIQUINOL [Concomitant]
  13. SYNTHROID [Concomitant]

REACTIONS (1)
  - Pleurisy [Recovering/Resolving]
